FAERS Safety Report 15580039 (Version 1)
Quarter: 2018Q4

REPORT INFORMATION
  Report Type: Spontaneous
  Country: US (occurrence: US)
  Receive Date: 20181102
  Receipt Date: 20181102
  Transmission Date: 20190205
  Serious: Yes (Other)
  Sender: FDA-Public Use
  Company Number: US-009507513-1810USA010998

PATIENT
  Age: 45 Year
  Sex: Male

DRUGS (6)
  1. SOFOSBUVIR [Suspect]
     Active Substance: SOFOSBUVIR
     Indication: HEPATITIS C
     Dosage: 400 MG ONCE DAILY
     Dates: start: 201403
  2. REBETOL [Suspect]
     Active Substance: RIBAVIRIN
     Indication: HEPATITIS C
     Dosage: WEIGHT-BASED RIBAVIRIN (600 MG TWICE DAILY)
     Dates: start: 201403
  3. PEGINTERFERON ALFA-2A. [Suspect]
     Active Substance: PEGINTERFERON ALFA-2A
     Dosage: 180 MICROGRAM, ONCE A WEEK
     Dates: start: 201404
  4. SOFOSBUVIR [Suspect]
     Active Substance: SOFOSBUVIR
     Dosage: 400 MG ONCE DAILY
     Dates: start: 201404
  5. REBETOL [Suspect]
     Active Substance: RIBAVIRIN
     Dosage: 200 MILLIGRAM, BID
  6. PEGINTERFERON ALFA-2A. [Suspect]
     Active Substance: PEGINTERFERON ALFA-2A
     Indication: HEPATITIS C
     Dosage: 180 MICROGRAM, ONCE A WEEK
     Dates: start: 201403

REACTIONS (1)
  - Anaemia [Recovered/Resolved]
